FAERS Safety Report 11029160 (Version 1)
Quarter: 2015Q2

REPORT INFORMATION
  Report Type: Spontaneous
  Country: JP (occurrence: JP)
  Receive Date: 20150415
  Receipt Date: 20150415
  Transmission Date: 20150821
  Serious: Yes (Death, Hospitalization)
  Sender: FDA-Public Use
  Company Number: GXJP2015JP000690

PATIENT
  Age: 33 Year
  Sex: Female
  Weight: 44.6 kg

DRUGS (4)
  1. RIFAMPICIN [Suspect]
     Active Substance: RIFAMPIN
     Indication: PULMONARY TUBERCULOSIS
     Route: 048
  2. ISONIAZID. [Suspect]
     Active Substance: ISONIAZID
     Indication: PULMONARY TUBERCULOSIS
     Route: 048
  3. ETHAMBUTOL [Suspect]
     Active Substance: ETHAMBUTOL HYDROCHLORIDE
     Indication: PULMONARY TUBERCULOSIS
     Route: 048
  4. ADRENALINE [Concomitant]
     Active Substance: EPINEPHRINE
     Indication: PRODUCT USED FOR UNKNOWN INDICATION
     Route: 065

REACTIONS (6)
  - Pyrexia [Unknown]
  - Cardiac arrest [Fatal]
  - Maternal exposure during pregnancy [Unknown]
  - Stillbirth [Unknown]
  - Haemoptysis [Unknown]
  - Cardio-respiratory arrest [Unknown]
